FAERS Safety Report 7384909-5 (Version None)
Quarter: 2011Q1

REPORT INFORMATION
  Report Type: 
  Country: None (occurrence: None)
  Receive Date: 20110322
  Receipt Date: 20110307
  Transmission Date: 20110831
  Serious: Yes (Hospitalization)
  Sender: FDA-Public Use
  Company Number: TCI2011A01831

PATIENT
  Age: 100 Year
  Sex: Female

DRUGS (1)
  1. ROZEREM [Suspect]
     Indication: INSOMNIA
     Dosage: 8 MG (8 MG, 1 IN 1 D), PER ORAL
     Route: 048
     Dates: start: 20110228, end: 20110302

REACTIONS (4)
  - HYPERSOMNIA [None]
  - EXTRADURAL HAEMATOMA [None]
  - FALL [None]
  - CONTUSION [None]
